FAERS Safety Report 17076108 (Version 2)
Quarter: 2020Q3

REPORT INFORMATION
  Report Type: Report from Study
  Country: FR (occurrence: FR)
  Receive Date: 20191126
  Receipt Date: 20200817
  Transmission Date: 20201102
  Serious: Yes (Death)
  Sender: FDA-Public Use
  Company Number: FR-PFIZER INC-2019505436

PATIENT
  Age: 62 Year

DRUGS (3)
  1. FLUOROURACIL. [Suspect]
     Active Substance: FLUOROURACIL
     Indication: PHARYNGEAL CANCER METASTATIC
     Dosage: UNK, CYCLIC
  2. CETUXIMAB. [Suspect]
     Active Substance: CETUXIMAB
     Indication: PHARYNGEAL CANCER METASTATIC
     Dosage: UNK, CYCLIC
  3. CARBOPLATIN. [Suspect]
     Active Substance: CARBOPLATIN
     Indication: PHARYNGEAL CANCER METASTATIC
     Dosage: UNK, CYCLIC

REACTIONS (1)
  - Febrile neutropenia [Fatal]
